FAERS Safety Report 4374179-4 (Version None)
Quarter: 2004Q2

REPORT INFORMATION
  Report Type: 
  Country: None (occurrence: None)
  Receive Date: 20040607
  Receipt Date: 20020516
  Transmission Date: 20050107
  Serious: Yes (Hospitalization, Disabling)
  Sender: FDA-Public Use
  Company Number: US-MERCK-0205USA02029

PATIENT
  Age: 49 Year
  Sex: Male
  Weight: 75 kg

DRUGS (2)
  1. LORCET-HD [Concomitant]
     Indication: PAIN
     Route: 065
  2. VIOXX [Suspect]
     Route: 048

REACTIONS (27)
  - AMNESIA [None]
  - ANAEMIA [None]
  - ANXIETY [None]
  - ARTHRALGIA [None]
  - BACK PAIN [None]
  - CARDIAC MURMUR [None]
  - CHEST PAIN [None]
  - CHOLESTEROL GRANULOMA [None]
  - CHRONIC FATIGUE SYNDROME [None]
  - DEPRESSION [None]
  - DYSPNOEA [None]
  - ERYTHEMA [None]
  - HEART RATE IRREGULAR [None]
  - HYPERLIPIDAEMIA [None]
  - HYPOACUSIS [None]
  - HYPOAESTHESIA [None]
  - INSOMNIA [None]
  - LABILE HYPERTENSION [None]
  - MUSCLE CRAMP [None]
  - NAIL DISORDER [None]
  - NAUSEA [None]
  - OEDEMA [None]
  - OSTEOARTHRITIS [None]
  - RHINITIS ALLERGIC [None]
  - RHINORRHOEA [None]
  - SPHEROCYTIC ANAEMIA [None]
  - TACHYCARDIA [None]
